FAERS Safety Report 14765288 (Version 2)
Quarter: 2018Q3

REPORT INFORMATION
  Report Type: Spontaneous
  Country: IT (occurrence: IT)
  Receive Date: 20180416
  Receipt Date: 20180714
  Transmission Date: 20181010
  Serious: Yes (Hospitalization)
  Sender: FDA-Public Use
  Company Number: IT-TEVA-2018-IT-880227

PATIENT
  Age: 52 Year
  Sex: Female

DRUGS (13)
  1. PREZISTA [Concomitant]
     Active Substance: DARUNAVIR ETHANOLATE
     Route: 065
  2. PANTOPRAZOLE [Concomitant]
     Active Substance: PANTOPRAZOLE
     Route: 065
  3. OLANZAPINE. [Concomitant]
     Active Substance: OLANZAPINE
     Route: 065
  4. SELEPARINA [Concomitant]
     Active Substance: NADROPARIN CALCIUM
     Route: 065
  5. LEVETIRACETAM. [Concomitant]
     Active Substance: LEVETIRACETAM
     Route: 065
  6. NORVIR [Concomitant]
     Active Substance: RITONAVIR
     Route: 065
  7. METHADONE HYDROCHLORIDE. [Concomitant]
     Active Substance: METHADONE HYDROCHLORIDE
     Route: 065
  8. KIVEXA 600 MG/300 MG FILM?COATED TABLETS [Concomitant]
     Route: 065
  9. OLMESARTAN MEDOXOMIL. [Concomitant]
     Active Substance: OLMESARTAN MEDOXOMIL
     Route: 065
  10. TAVOR (LORAZEPAM) [Concomitant]
     Active Substance: LORAZEPAM
     Route: 065
  11. MIRTAZAPINE. [Suspect]
     Active Substance: MIRTAZAPINE
     Indication: DEPRESSED MOOD
     Dosage: 30 MILLIGRAM DAILY;
     Route: 065
     Dates: start: 20171212, end: 20171223
  12. CREON [Concomitant]
     Active Substance: PANCRELIPASE AMYLASE\PANCRELIPASE LIPASE\PANCRELIPASE PROTEASE
     Route: 065
  13. ETILTOX [Concomitant]
     Active Substance: DISULFIRAM
     Route: 065

REACTIONS (10)
  - Agitation [Unknown]
  - Coma hepatic [Unknown]
  - Coma hepatic [Recovered/Resolved]
  - Disorientation [Unknown]
  - Cyanosis [Unknown]
  - Cyanosis [Recovered/Resolved]
  - Agitation [Recovered/Resolved]
  - Disorientation [Recovered/Resolved]
  - Hyperhidrosis [Unknown]
  - Hyperhidrosis [Recovered/Resolved]

NARRATIVE: CASE EVENT DATE: 20171213
